FAERS Safety Report 7953429-9 (Version None)
Quarter: 2011Q4

REPORT INFORMATION
  Report Type: 
  Country: None (occurrence: None)
  Receive Date: 20111202
  Receipt Date: 20111122
  Transmission Date: 20120403
  Serious: Yes (Death, Hospitalization, Disabling, Other)
  Sender: FDA-Public Use
  Company Number: BR-BAYER-201011949LA

PATIENT
  Age: 41 Year
  Sex: Female

DRUGS (11)
  1. BETASERON [Suspect]
     Indication: SECONDARY PROGRESSIVE MULTIPLE SCLEROSIS
     Dosage: BETAJECT
     Route: 058
     Dates: start: 20060101
  2. ACETAMINOPHEN [Concomitant]
     Indication: PREMEDICATION
     Dosage: 500 MG, UNK
     Route: 048
     Dates: start: 20060101
  3. CAPTOPRIL [Concomitant]
     Indication: HYPERTENSION
     Dosage: 25 MG, QD
     Route: 048
     Dates: start: 20070101
  4. PROPRANOLOL [Concomitant]
     Indication: TACHYCARDIA
     Dosage: 10 MG, TID
     Route: 048
     Dates: start: 20100301
  5. PAROXETINE HCL [Concomitant]
     Indication: DEPRESSION
     Dosage: 20 MG, BID
     Route: 048
     Dates: start: 20040101
  6. METHYLPREDNISOLONE [Concomitant]
     Indication: MULTIPLE SCLEROSIS
     Dosage: 20 MG, QD
     Route: 048
     Dates: start: 20030101
  7. PROPRANOLOL [Concomitant]
     Indication: HYPERTENSION
     Dosage: 20 MG, QD
     Route: 048
     Dates: start: 20090101, end: 20100901
  8. PAROXETINE HCL [Concomitant]
     Indication: ANXIETY
  9. RANITIDINE HYDROCHLORIDE [Concomitant]
     Indication: PROPHYLAXIS
     Dosage: 1 DF, QD
     Route: 048
     Dates: start: 20030101
  10. PAROXETINE HCL [Concomitant]
  11. METHYLPREDNISOLONE [Concomitant]

REACTIONS (21)
  - MUSCLE SPASMS [None]
  - ERYTHEMA [None]
  - PHLEBITIS [None]
  - CATARACT [None]
  - MUSCLE SPASTICITY [None]
  - WOUND INFECTION PSEUDOMONAS [None]
  - INJECTION SITE INFECTION [None]
  - INJECTION SITE ULCER [None]
  - IRRITABILITY [None]
  - ARRHYTHMIA [None]
  - PURULENT DISCHARGE [None]
  - HYPOTONIA [None]
  - SECRETION DISCHARGE [None]
  - DISCOMFORT [None]
  - INJECTION SITE REACTION [None]
  - INJECTION SITE INFLAMMATION [None]
  - OEDEMA PERIPHERAL [None]
  - SOMNOLENCE [None]
  - MULTIPLE SCLEROSIS [None]
  - TACHYCARDIA [None]
  - RENAL FAILURE [None]
